FAERS Safety Report 12634178 (Version 1)
Quarter: 2016Q3

REPORT INFORMATION
  Report Type: Report from Study
  Country: PH (occurrence: PH)
  Receive Date: 20160809
  Receipt Date: 20160809
  Transmission Date: 20161109
  Serious: Yes (Death, Disabling, Other)
  Sender: FDA-Public Use
  Company Number: PH-009507513-1608PHL003159

PATIENT
  Age: 82 Year
  Sex: Male

DRUGS (1)
  1. JANUVIA [Suspect]
     Active Substance: SITAGLIPTIN PHOSPHATE
     Indication: DIABETES MELLITUS
     Dosage: 1 DF, QD
     Route: 048
     Dates: start: 2014

REACTIONS (3)
  - Death [Fatal]
  - Parkinson^s disease [Unknown]
  - Adverse event [Unknown]

NARRATIVE: CASE EVENT DATE: 2014
